FAERS Safety Report 15693736 (Version 3)
Quarter: 2018Q4

REPORT INFORMATION
  Report Type: Spontaneous
  Country: PL (occurrence: PL)
  Receive Date: 20181206
  Receipt Date: 20181224
  Transmission Date: 20190205
  Serious: Yes (Hospitalization, Other)
  Sender: FDA-Public Use
  Company Number: PL-AUROBINDO-AUR-APL-2018-058972

PATIENT
  Age: 42 Year
  Sex: Female

DRUGS (4)
  1. CIPROFLOXACINUM CLARIS, 2 MG/ML, ROZTW?R DO INFUZJI [Suspect]
     Active Substance: CIPROFLOXACIN LACTATE
     Indication: RESPIRATORY TRACT INFECTION
     Dosage: UNK
  2. DEXTROMETHORPHAN [Suspect]
     Active Substance: DEXTROMETHORPHAN
     Indication: RESPIRATORY TRACT INFECTION
     Dosage: UNK
     Route: 065
  3. PARACETAMOL [Suspect]
     Active Substance: ACETAMINOPHEN
     Indication: RESPIRATORY TRACT INFECTION
     Dosage: UNK
     Route: 065
  4. PSEUDOEPHEDRINE. [Suspect]
     Active Substance: PSEUDOEPHEDRINE HYDROCHLORIDE
     Indication: RESPIRATORY TRACT INFECTION
     Dosage: UNK
     Route: 065

REACTIONS (1)
  - Acute generalised exanthematous pustulosis [Recovered/Resolved]
